FAERS Safety Report 14962684 (Version 1)
Quarter: 2018Q2

REPORT INFORMATION
  Report Type: Spontaneous
  Country: TW (occurrence: TW)
  Receive Date: 20180601
  Receipt Date: 20180601
  Transmission Date: 20180711
  Serious: Yes (Hospitalization, Other)
  Sender: FDA-Public Use
  Company Number: TW-AMGEN-TWNSP2018073528

PATIENT
  Age: 43 Year
  Sex: Female

DRUGS (4)
  1. ENBREL [Suspect]
     Active Substance: ETANERCEPT
     Indication: ANKYLOSING SPONDYLITIS
     Dosage: 25 MG, WEEKLY(QW)
     Route: 058
     Dates: start: 20130429, end: 20180516
  2. SULFASALAZINE. [Concomitant]
     Active Substance: SULFASALAZINE
     Dosage: 2 DF, BID
  3. MTX [Concomitant]
     Active Substance: METHOTREXATE SODIUM
     Dosage: 7 DF, QW
  4. CELEBREX [Concomitant]
     Active Substance: CELECOXIB
     Dosage: 1 DF, QD

REACTIONS (2)
  - Vasculitis [Recovering/Resolving]
  - Product use issue [Unknown]

NARRATIVE: CASE EVENT DATE: 20130429
